FAERS Safety Report 15426871 (Version 1)
Quarter: 2018Q3

REPORT INFORMATION
  Report Type: Spontaneous
  Country: US (occurrence: US)
  Receive Date: 20180925
  Receipt Date: 20180925
  Transmission Date: 20181010
  Serious: No
  Sender: FDA-Public Use
  Company Number: US-INDIVIOR LIMITED-INDV-108157-2018

PATIENT
  Sex: Male

DRUGS (2)
  1. SUBOXONE [Suspect]
     Active Substance: BUPRENORPHINE HYDROCHLORIDE\NALOXONE HYDROCHLORIDE
     Indication: DRUG DEPENDENCE
     Dosage: UNK
     Route: 065
     Dates: start: 2017
  2. SUBOXONE [Suspect]
     Active Substance: BUPRENORPHINE HYDROCHLORIDE\NALOXONE HYDROCHLORIDE
     Indication: DRUG DEPENDENCE
     Dosage: UNK
     Route: 060
     Dates: start: 2012, end: 2012

REACTIONS (13)
  - Drug effect incomplete [Recovered/Resolved]
  - Intentional underdose [Recovered/Resolved]
  - Hyperhidrosis [Recovered/Resolved]
  - Restless legs syndrome [Recovered/Resolved]
  - Emotional disorder [Recovered/Resolved]
  - Feeling cold [Recovered/Resolved]
  - Cold sweat [Recovered/Resolved]
  - Drug withdrawal syndrome [Recovered/Resolved]
  - Insomnia [Recovered/Resolved]
  - Depression [Recovered/Resolved]
  - Nausea [Recovered/Resolved]
  - Wrong technique in product usage process [Unknown]
  - Anxiety [Recovered/Resolved]

NARRATIVE: CASE EVENT DATE: 2012
